FAERS Safety Report 10211474 (Version 1)
Quarter: 2014Q2

REPORT INFORMATION
  Report Type: Report from Study
  Country: ES (occurrence: ES)
  Receive Date: 20140602
  Receipt Date: 20140602
  Transmission Date: 20141212
  Serious: Yes (Hospitalization)
  Sender: FDA-Public Use
  Company Number: ES-PFIZER INC-2014145783

PATIENT
  Age: 58 Year
  Sex: Female

DRUGS (6)
  1. CARDURAN NEO [Suspect]
     Indication: HYPERTENSION
     Dosage: 4 MG, 1X/DAY
     Route: 048
     Dates: end: 20130922
  2. LOSARTAN POTASSIUM [Interacting]
     Indication: HYPERTENSION
     Dosage: 50 MG, 1X/DAY
     Route: 048
     Dates: start: 201304, end: 20130922
  3. OMEPRAZOLE [Concomitant]
     Indication: PROPHYLAXIS
     Dosage: 20 MG, 1X/DAY
     Route: 048
  4. PARACETAMOL [Concomitant]
     Dosage: 3 G, 1X/DAY
     Route: 048
  5. COROPRES [Concomitant]
     Indication: HYPERTENSION
     Dosage: 12.5 MG, 1X/DAY
     Route: 048
     Dates: end: 20130922
  6. RAPAMUNE [Concomitant]
     Indication: RENAL TRANSPLANT
     Dosage: 2 MG, 1X/DAY
     Route: 048
     Dates: start: 201201

REACTIONS (2)
  - Drug interaction [Recovered/Resolved]
  - Renal failure acute [Recovered/Resolved]
